FAERS Safety Report 5196319-X (Version None)
Quarter: 2007Q1

REPORT INFORMATION
  Report Type: 
  Country: None (occurrence: None)
  Receive Date: 20070102
  Receipt Date: 20061221
  Transmission Date: 20070707
  Serious: Yes (Other)
  Sender: FDA-Public Use
  Company Number: JP-PFIZER INC-2006155645

PATIENT
  Age: 85 Year
  Sex: Female

DRUGS (13)
  1. HALCION [Suspect]
     Route: 048
  2. GLAKAY [Concomitant]
     Route: 048
  3. CALCIUM CARBONATE [Concomitant]
     Route: 048
  4. VITAMEDIN CAPSULE [Concomitant]
     Route: 048
  5. ALFAROL [Concomitant]
     Route: 048
  6. CONTOL [Concomitant]
     Route: 048
  7. SLOW-FE [Concomitant]
     Route: 048
  8. ISALON [Concomitant]
     Route: 048
  9. BUSCOPAN [Concomitant]
  10. LASIX [Concomitant]
     Route: 048
  11. LAMISIL [Concomitant]
  12. GASTROM [Concomitant]
     Route: 048
  13. MYONAL [Concomitant]
     Route: 048

REACTIONS (1)
  - HALLUCINATION [None]
